FAERS Safety Report 5148958-X (Version None)
Quarter: 2006Q4

REPORT INFORMATION
  Report Type: 
  Country: None (occurrence: None)
  Receive Date: 20061113
  Receipt Date: 20061109
  Transmission Date: 20070319
  Serious: Yes (Hospitalization)
  Sender: FDA-Public Use
  Company Number: AU-BRISTOL-MYERS SQUIBB COMPANY-13571823

PATIENT
  Age: 50 Year
  Sex: Male

DRUGS (5)
  1. AVAPRO [Suspect]
     Route: 048
  2. SIROLIMUS [Suspect]
     Indication: COMPLICATIONS OF TRANSPLANT SURGERY
     Dates: start: 20050115, end: 20050617
  3. IMURAN [Suspect]
  4. LASIX [Suspect]
  5. ALLOPURINOL [Suspect]
     Route: 048

REACTIONS (2)
  - NEPHROPATHY TOXIC [None]
  - RENAL IMPAIRMENT [None]
